FAERS Safety Report 6483080-1 (Version None)
Quarter: 2009Q4

REPORT INFORMATION
  Report Type: 
  Country: None (occurrence: None)
  Receive Date: 20091209
  Receipt Date: 20090420
  Transmission Date: 20100525
  Serious: No
  Sender: FDA-Public Use
  Company Number: US-AMGEN-KDL343608

PATIENT
  Sex: Male

DRUGS (3)
  1. ENBREL [Suspect]
     Indication: PSORIASIS
  2. HUMIRA [Suspect]
     Indication: PSORIASIS
     Route: 058
  3. UNSPECIFIED MEDICATION [Concomitant]

REACTIONS (6)
  - ANTINUCLEAR ANTIBODY POSITIVE [None]
  - DNA ANTIBODY POSITIVE [None]
  - DRUG INEFFECTIVE [None]
  - OEDEMA PERIPHERAL [None]
  - PAIN [None]
  - PSORIASIS [None]
